FAERS Safety Report 10100807 (Version 2)
Quarter: 2014Q2

REPORT INFORMATION
  Report Type: Spontaneous
  Country: CA (occurrence: CA)
  Receive Date: 20140423
  Receipt Date: 20140423
  Transmission Date: 20141212
  Serious: Yes (Other)
  Sender: FDA-Public Use
  Company Number: CA-ACTAVIS-2014-01943

PATIENT
  Age: 32 Year
  Sex: Female
  Weight: 59 kg

DRUGS (1)
  1. NEXT CHOICE [Suspect]
     Indication: POST COITAL CONTRACEPTION
     Dosage: 2 TABLETS AS SOON AS POSSIBLE
     Dates: start: 20131230, end: 20131230

REACTIONS (3)
  - Abortion induced [Recovered/Resolved]
  - Pregnancy [Recovered/Resolved]
  - Drug ineffective [Recovered/Resolved]
